FAERS Safety Report 20657279 (Version 8)
Quarter: 2022Q3

REPORT INFORMATION
  Report Type: Spontaneous
  Country: CA (occurrence: CA)
  Receive Date: 20220331
  Receipt Date: 20220706
  Transmission Date: 20221026
  Serious: Yes (Other)
  Sender: FDA-Public Use
  Company Number: CA-CELLTRION INC.-2022CA002556

PATIENT

DRUGS (9)
  1. INFLECTRA [Suspect]
     Active Substance: INFLIXIMAB-DYYB
     Indication: Crohn^s disease
     Dosage: 5 MG/KG, AT 0, 2, 6 WEEKS, THEN EVERY 8 WEEKS
     Route: 042
  2. INFLECTRA [Suspect]
     Active Substance: INFLIXIMAB-DYYB
     Dosage: 5 MG/KG, AT 0, 2, 6 WEEKS, THEN EVERY 8 WEEKS
     Route: 042
     Dates: start: 20211206
  3. INFLECTRA [Suspect]
     Active Substance: INFLIXIMAB-DYYB
     Dosage: 5 MG/KG, AT 0, 2, 6 WEEKS, THEN EVERY 8 WEEKS
     Route: 042
     Dates: start: 20220113
  4. INFLECTRA [Suspect]
     Active Substance: INFLIXIMAB-DYYB
     Dosage: 5 MG/KG, AT 0, 2, 6 WEEKS, THEN EVERY 8 WEEKS
     Route: 042
     Dates: start: 20220113, end: 20220524
  5. INFLECTRA [Suspect]
     Active Substance: INFLIXIMAB-DYYB
     Dosage: 5 MG/KG, AT 0, 2, 6 WEEKS, THEN EVERY 8 WEEKS
     Route: 042
     Dates: start: 20220127
  6. INFLECTRA [Suspect]
     Active Substance: INFLIXIMAB-DYYB
     Dosage: 5 MG/KG EVERY 4 WEEKS
     Route: 042
     Dates: start: 20220318
  7. INFLECTRA [Suspect]
     Active Substance: INFLIXIMAB-DYYB
     Dosage: 5 MG/KG, AT 0, 2, 6 WEEKS, THEN EVERY 8 WEEKS
     Route: 042
     Dates: start: 20220524
  8. ENTOCORT [Concomitant]
     Active Substance: BUDESONIDE
     Dosage: 1 DF, UNKNOWN DOSE
     Route: 065
  9. PENTASA [Concomitant]
     Active Substance: MESALAMINE
     Dosage: 1 DF, UNKNOWN DOSE
     Route: 065

REACTIONS (19)
  - Abdominal pain [Unknown]
  - Drug ineffective [Unknown]
  - Inappropriate schedule of product administration [Unknown]
  - Off label use [Unknown]
  - Constipation [Recovering/Resolving]
  - Nausea [Unknown]
  - Hyperhidrosis [Unknown]
  - Headache [Recovered/Resolved]
  - Infrequent bowel movements [Unknown]
  - Condition aggravated [Unknown]
  - Fatigue [Recovering/Resolving]
  - Muscle spasms [Recovering/Resolving]
  - Abdominal pain [Unknown]
  - Fatigue [Recovering/Resolving]
  - Diarrhoea [Not Recovered/Not Resolved]
  - Headache [Recovering/Resolving]
  - Condition aggravated [Unknown]
  - Abdominal distension [Recovering/Resolving]
  - Back pain [Not Recovered/Not Resolved]

NARRATIVE: CASE EVENT DATE: 20220101
